FAERS Safety Report 6105218-8 (Version None)
Quarter: 2009Q1

REPORT INFORMATION
  Report Type: 
  Country: None (occurrence: None)
  Receive Date: 20090304
  Receipt Date: 20090220
  Transmission Date: 20090719
  Serious: Yes (Other)
  Sender: FDA-Public Use
  Company Number: 2009SP004333

PATIENT
  Age: 38 Year
  Sex: Female
  Weight: 79.3795 kg

DRUGS (1)
  1. CLARITIN-D 24 HOUR [Suspect]
     Dosage: PO
     Route: 048

REACTIONS (1)
  - SLEEP APNOEA SYNDROME [None]
